FAERS Safety Report 12194113 (Version 1)
Quarter: 2016Q1

REPORT INFORMATION
  Report Type: Spontaneous
  Country: US (occurrence: None)
  Receive Date: 20160318
  Receipt Date: 20160318
  Transmission Date: 20160526
  Serious: Yes (Other)
  Sender: FDA-Public Use
  Company Number: None

PATIENT
  Age: 46 Year
  Sex: Female
  Weight: 61.24 kg

DRUGS (1)
  1. VIIBRYD [Suspect]
     Active Substance: VILAZODONE HYDROCHLORIDE

REACTIONS (7)
  - Psychotic disorder [None]
  - Sleep terror [None]
  - Feeling abnormal [None]
  - Mood swings [None]
  - Hallucination [None]
  - Sleep paralysis [None]
  - Paraesthesia [None]

NARRATIVE: CASE EVENT DATE: 20160128
